FAERS Safety Report 11253035 (Version 1)
Quarter: 2015Q3

REPORT INFORMATION
  Report Type: Spontaneous
  Country: US (occurrence: None)
  Receive Date: 20150707
  Receipt Date: 20150707
  Transmission Date: 20151125
  Serious: Yes (Hospitalization, Other)
  Sender: FDA-Public Use
  Company Number: 2015HINLIT0530

PATIENT
  Age: 29 Year
  Sex: Female

DRUGS (3)
  1. LITHIUM. [Suspect]
     Active Substance: LITHIUM
     Indication: SCHIZOAFFECTIVE DISORDER
     Route: 048
  2. CLONZAPINE [Concomitant]
     Active Substance: CLOZAPINE
  3. METFORMIN [Concomitant]
     Active Substance: METFORMIN HYDROCHLORIDE

REACTIONS (7)
  - Confusional state [None]
  - Incoherent [None]
  - Electrocardiogram T wave inversion [None]
  - Acute kidney injury [None]
  - Mental status changes [None]
  - Toxicity to various agents [None]
  - Electrocardiogram QT prolonged [None]
